FAERS Safety Report 18565303 (Version 1)
Quarter: 2020Q4

REPORT INFORMATION
  Report Type: Spontaneous
  Country: US (occurrence: US)
  Receive Date: 20201201
  Receipt Date: 20201201
  Transmission Date: 20210114
  Serious: Yes (Other)
  Sender: FDA-Public Use
  Company Number: US-009507513-2011USA014960

PATIENT
  Age: 74 Year
  Sex: Female
  Weight: 112.7 kg

DRUGS (12)
  1. PRINIVIL [Suspect]
     Active Substance: LISINOPRIL
     Route: 048
     Dates: start: 20120831
  2. GABAPENTIN. [Concomitant]
     Active Substance: GABAPENTIN
     Route: 048
     Dates: start: 20121018
  3. ASPIRIN. [Concomitant]
     Active Substance: ASPIRIN
     Route: 048
     Dates: start: 20120321
  4. ACETAMINOPHEN (+) HYDROCODONE BITARTRATE [Concomitant]
     Active Substance: ACETAMINOPHEN\HYDROCODONE BITARTRATE
     Indication: PAIN
     Dosage: 10-32.5 MG, 1 PER 4 HOURS AS NEEDED
     Route: 048
     Dates: start: 20120321
  5. PRINIVIL [Suspect]
     Active Substance: LISINOPRIL
     Route: 048
  6. HYDROCHLOROTHIAZIDE. [Concomitant]
     Active Substance: HYDROCHLOROTHIAZIDE
     Dosage: 25 MG, 1 TABLET ON MON, WED AND FRI
     Route: 048
     Dates: start: 20120321
  7. BROVANA [Concomitant]
     Active Substance: ARFORMOTEROL TARTRATE
     Dosage: 1 INHALATION, 3 TIMES DAILY
     Route: 055
     Dates: start: 20120321
  8. CLARITIN [Concomitant]
     Active Substance: LORATADINE
     Route: 048
     Dates: start: 20120321
  9. NOVOLOG MIX 70/30 [Concomitant]
     Active Substance: INSULIN ASPART
     Dosage: FLEXPEN 70-30 PERCENT, 35 UNITS THREE TIMES IN A DAY, PREMEALS
     Route: 058
     Dates: start: 20120321
  10. MUCINEX D [Concomitant]
     Active Substance: GUAIFENESIN\PSEUDOEPHEDRINE HYDROCHLORIDE
     Dosage: 60-600 MG, PER 12 HOUR AS NEEDED
     Route: 048
     Dates: start: 20120321
  11. CRESTOR [Suspect]
     Active Substance: ROSUVASTATIN CALCIUM
     Route: 048
     Dates: start: 20120321
  12. NOVOLOG MIX 70/30 [Concomitant]
     Active Substance: INSULIN ASPART
     Dosage: FLEXPEN 70-30 PERCENT, 35 UNITS THREE TIMES IN A DAY, PREMEALS
     Route: 058

REACTIONS (16)
  - Hyperlipidaemia [Unknown]
  - Asthma [Unknown]
  - Cerebrovascular accident [Unknown]
  - Diabetes mellitus [Unknown]
  - Abscess limb [Unknown]
  - Neuropathy peripheral [Unknown]
  - Depression [Unknown]
  - Ulcer [Unknown]
  - Asthenia [Unknown]
  - Essential hypertension [Unknown]
  - Insomnia [Unknown]
  - Hypercholesterolaemia [Unknown]
  - Cataract [Unknown]
  - Overweight [Unknown]
  - Visual impairment [Unknown]
  - Chronic obstructive pulmonary disease [Unknown]
